FAERS Safety Report 7637943-1 (Version None)
Quarter: 2011Q3

REPORT INFORMATION
  Report Type: 
  Country: None (occurrence: None)
  Receive Date: 20110712
  Receipt Date: 20110630
  Transmission Date: 20111222
  Serious: Yes (Other)
  Sender: FDA-Public Use
  Company Number: 2011028300

PATIENT
  Sex: Male
  Weight: 74.8435 kg

DRUGS (1)
  1. HIZENTRA [Suspect]
     Indication: IMMUNODEFICIENCY COMMON VARIABLE
     Dosage: 20 G 1X/WEEK SUBCUTANEOUS)
     Route: 058
     Dates: start: 20101201

REACTIONS (1)
  - WEIGHT DECREASED [None]
